FAERS Safety Report 6855242-2 (Version None)
Quarter: 2010Q3

REPORT INFORMATION
  Report Type: 
  Country: None (occurrence: None)
  Receive Date: 20100719
  Receipt Date: 20100713
  Transmission Date: 20110219
  Serious: Yes (Hospitalization)
  Sender: FDA-Public Use
  Company Number: US-BIOGENIDEC-2010BI023321

PATIENT
  Age: 43 Year
  Sex: Female

DRUGS (3)
  1. TYSABRI [Suspect]
     Indication: MULTIPLE SCLEROSIS
     Route: 042
     Dates: start: 20090116
  2. PERCOCET [Concomitant]
     Indication: PAIN
  3. MORPHINE [Concomitant]
     Indication: PAIN

REACTIONS (6)
  - HYPERSOMNIA [None]
  - INFUSION SITE OEDEMA [None]
  - INFUSION SITE THROMBOSIS [None]
  - OEDEMA PERIPHERAL [None]
  - THROMBOSIS [None]
  - UTERINE LEIOMYOMA [None]
